FAERS Safety Report 25490447 (Version 1)
Quarter: 2025Q2

REPORT INFORMATION
  Report Type: Spontaneous
  Country: DE (occurrence: DE)
  Receive Date: 20250627
  Receipt Date: 20250627
  Transmission Date: 20250716
  Serious: Yes (Other)
  Sender: ELI LILLY AND COMPANY
  Company Number: DE-ELI_LILLY_AND_COMPANY-DE202506021033

PATIENT
  Age: 22 Year
  Sex: Male

DRUGS (2)
  1. LYUMJEV KWIKPEN [Suspect]
     Active Substance: INSULIN LISPRO
     Indication: Type 1 diabetes mellitus
     Route: 065
     Dates: end: 202408
  2. INSULIN DEGLUDEC [Concomitant]
     Active Substance: INSULIN DEGLUDEC
     Indication: Product used for unknown indication
     Route: 065

REACTIONS (4)
  - Ketoacidosis [Unknown]
  - Blood glucose increased [Unknown]
  - Glycosylated haemoglobin increased [Recovering/Resolving]
  - Hypoglycaemia [Unknown]

NARRATIVE: CASE EVENT DATE: 20220101
